FAERS Safety Report 8062073-7 (Version None)
Quarter: 2012Q1

REPORT INFORMATION
  Report Type: 
  Country: None (occurrence: None)
  Receive Date: 20120123
  Receipt Date: 20120111
  Transmission Date: 20120608
  Serious: Yes (Other)
  Sender: FDA-Public Use
  Company Number: ES-GENZYME-CERZ-1002364

PATIENT
  Sex: Male

DRUGS (4)
  1. CEREZYME [Suspect]
     Dosage: UNK UNK, UNK
     Route: 042
     Dates: start: 20090601, end: 20110101
  2. OPIOIDS [Concomitant]
     Indication: PAIN IN EXTREMITY
     Dosage: UNK UNK, UNK
     Route: 065
  3. CEREZYME [Suspect]
     Dosage: UNK UNK, UNK
     Route: 042
     Dates: start: 20020101, end: 20090601
  4. CEREZYME [Suspect]
     Indication: GAUCHER'S DISEASE
     Dosage: 60 U/KG, UNK
     Route: 042
     Dates: start: 20110101

REACTIONS (4)
  - DISEASE PROGRESSION [None]
  - PROSTHESIS IMPLANTATION [None]
  - PAIN IN EXTREMITY [None]
  - OSTEITIS [None]
